FAERS Safety Report 16974528 (Version 2)
Quarter: 2019Q4

REPORT INFORMATION
  Report Type: Spontaneous
  Country: US (occurrence: US)
  Receive Date: 20191030
  Receipt Date: 20191111
  Transmission Date: 20200122
  Serious: Yes (Other)
  Sender: FDA-Public Use
  Company Number: NVSC2019US018559

PATIENT
  Sex: Female

DRUGS (1)
  1. ZOLGENSMA [Suspect]
     Active Substance: ONASEMNOGENE ABEPARVOVEC-XIOI
     Indication: SPINAL MUSCULAR ATROPHY
     Dosage: UNK, ONCE/SINGLE
     Route: 042
     Dates: start: 20190920, end: 20190920

REACTIONS (9)
  - Weight increased [Unknown]
  - Abdominal distension [Unknown]
  - Fluid retention [Unknown]
  - Pain [Unknown]
  - Peripheral swelling [Unknown]
  - Blood pressure decreased [Unknown]
  - Generalised oedema [Unknown]
  - Renal impairment [Unknown]
  - Sedation [Unknown]

NARRATIVE: CASE EVENT DATE: 20191004
